FAERS Safety Report 22945316 (Version 2)
Quarter: 2024Q2

REPORT INFORMATION
  Report Type: Spontaneous
  Country: AU (occurrence: AU)
  Receive Date: 20230914
  Receipt Date: 20240531
  Transmission Date: 20240716
  Serious: Yes (Other)
  Sender: FDA-Public Use
  Company Number: AU-002147023-NVSC2023AU194098

PATIENT
  Age: 53 Year
  Sex: Male
  Weight: 88 kg

DRUGS (22)
  1. ATROPINE [Suspect]
     Active Substance: ATROPINE\ATROPINE SULFATE
     Indication: Product used for unknown indication
     Dosage: UNK (AS DIRECTED)
     Route: 065
  2. BUPRENORPHINE [Suspect]
     Active Substance: BUPRENORPHINE
     Indication: Product used for unknown indication
     Dosage: 15 UG, QW
     Route: 062
  3. COSENTYX [Suspect]
     Active Substance: SECUKINUMAB
     Indication: Psoriatic arthropathy
     Dosage: 150 MG, Q5W
     Route: 065
  4. COSENTYX [Suspect]
     Active Substance: SECUKINUMAB
     Dosage: 300 MG
     Route: 065
  5. COSENTYX [Suspect]
     Active Substance: SECUKINUMAB
     Dosage: UNK,Q4/52
     Route: 065
  6. DIPROSONE [Suspect]
     Active Substance: BETAMETHASONE DIPROPIONATE
     Indication: Product used for unknown indication
     Dosage: 0.05 %, BID (PRN)
     Route: 065
  7. OXYCODONE HYDROCHLORIDE [Suspect]
     Active Substance: OXYCODONE HYDROCHLORIDE
     Indication: Product used for unknown indication
     Dosage: 5 MG, QD
     Route: 065
  8. FOLIC ACID [Suspect]
     Active Substance: FOLIC ACID
     Indication: Product used for unknown indication
     Dosage: 500 UG,EXCEPT FRIDAY
     Route: 065
  9. FISH OIL [Suspect]
     Active Substance: FISH OIL
     Indication: Product used for unknown indication
     Dosage: 8 G, QD
     Route: 065
  10. FLECAINIDE [Suspect]
     Active Substance: FLECAINIDE
     Indication: Product used for unknown indication
     Dosage: 100 MG, BID
     Route: 065
  11. IBUPROFEN [Suspect]
     Active Substance: IBUPROFEN
     Indication: Product used for unknown indication
     Dosage: UNK, Q3W
     Route: 065
  12. METHOTREXATE [Suspect]
     Active Substance: METHOTREXATE
     Dosage: 10 MG
     Route: 048
  13. METHOTREXATE [Suspect]
     Active Substance: METHOTREXATE
     Dosage: 20 MG, Q3W
     Route: 048
  14. METHOTREXATE [Suspect]
     Active Substance: METHOTREXATE
     Dosage: 20 MG
     Route: 048
  15. METHOTREXATE [Suspect]
     Active Substance: METHOTREXATE
     Dosage: 20 MG
     Route: 058
  16. METHOTREXATE [Suspect]
     Active Substance: METHOTREXATE
     Indication: Prostatic specific antigen
     Dosage: 25 MG, QW
     Route: 065
     Dates: start: 201809
  17. NEXIUM [Suspect]
     Active Substance: ESOMEPRAZOLE MAGNESIUM
     Indication: Product used for unknown indication
     Dosage: 20 MG, BID
     Route: 065
  18. ONDANSETRON [Suspect]
     Active Substance: ONDANSETRON
     Indication: Product used for unknown indication
     Dosage: 4 MG
     Route: 065
  19. OXYCODONE [Suspect]
     Active Substance: OXYCODONE\OXYCODONE HYDROCHLORIDE
     Indication: Product used for unknown indication
     Dosage: 5 MG, QD
     Route: 065
  20. ACETAMINOPHEN [Suspect]
     Active Substance: ACETAMINOPHEN
     Indication: Product used for unknown indication
     Dosage: UNK, Q3W
     Route: 065
  21. PIROXICAM [Suspect]
     Active Substance: PIROXICAM
     Indication: Product used for unknown indication
     Dosage: 20 MG, QD
     Route: 065
     Dates: start: 2008
  22. TESTOSTERONE [Suspect]
     Active Substance: TESTOSTERONE
     Indication: Psoriatic arthropathy
     Dosage: UNK
     Route: 065

REACTIONS (13)
  - Renal impairment [Unknown]
  - Pancreatitis [Unknown]
  - Haematochezia [Unknown]
  - Psoriatic arthropathy [Unknown]
  - Psoriasis [Unknown]
  - Osteopenia [Unknown]
  - Inflammatory pain [Unknown]
  - Arthralgia [Recovering/Resolving]
  - Plantar fasciitis [Not Recovered/Not Resolved]
  - Gastrointestinal disorder [Unknown]
  - Nausea [Recovered/Resolved]
  - Secondary hypogonadism [Unknown]
  - Palmoplantar pustulosis [Recovering/Resolving]
